FAERS Safety Report 8204635-X (Version None)
Quarter: 2012Q1

REPORT INFORMATION
  Report Type: 
  Country: None (occurrence: None)
  Receive Date: 20120313
  Receipt Date: 20120229
  Transmission Date: 20120608
  Serious: Yes (Other)
  Sender: FDA-Public Use
  Company Number: SE-ELI_LILLY_AND_COMPANY-SE201203000089

PATIENT
  Sex: Female

DRUGS (1)
  1. ALIMTA [Suspect]

REACTIONS (1)
  - INTESTINAL PERFORATION [None]
